FAERS Safety Report 7402287-X (Version None)
Quarter: 2011Q2

REPORT INFORMATION
  Report Type: 
  Country: None (occurrence: None)
  Receive Date: 20110408
  Receipt Date: 20110330
  Transmission Date: 20111010
  Serious: Yes (Hospitalization)
  Sender: FDA-Public Use
  Company Number: CH-NOVOPROD-323159

PATIENT
  Age: 63 Year
  Sex: Male
  Weight: 82 kg

DRUGS (6)
  1. NORDITROPIN [Suspect]
     Dosage: 0.25 MG, QD
     Route: 058
     Dates: end: 20110104
  2. NORDITROPIN [Suspect]
     Indication: GROWTH HORMONE DEFICIENCY
     Dosage: 0.25 MG, QD
     Route: 058
  3. ASPIRIN [Concomitant]
     Dosage: 100 MG, QD
     Route: 048
     Dates: start: 20030101, end: 20110106
  4. PANTOPRAZOL                        /01263202/ [Concomitant]
     Dosage: 40 MG, QD
     Route: 048
     Dates: start: 19950101
  5. NORDITROPIN NORDIFLEX [Suspect]
     Indication: GROWTH HORMONE DEFICIENCY
     Dosage: 0.25 MG, QD
     Route: 058
     Dates: start: 20070801
  6. SORTIS [Concomitant]
     Dosage: 20 MG, QD
     Route: 048
     Dates: start: 20030101

REACTIONS (2)
  - WRONG DRUG ADMINISTERED [None]
  - PULMONARY EMBOLISM [None]
